FAERS Safety Report 18394432 (Version 3)
Quarter: 2021Q1

REPORT INFORMATION
  Report Type: Spontaneous
  Country: GB (occurrence: GB)
  Receive Date: 20201017
  Receipt Date: 20210212
  Transmission Date: 20210419
  Serious: Yes (Hospitalization)
  Sender: FDA-Public Use
  Company Number: NVSC2020GB192852

PATIENT
  Age: 53 Year
  Sex: Male

DRUGS (2)
  1. METHOTREXATE. [Suspect]
     Active Substance: METHOTREXATE
     Indication: RHEUMATOID ARTHRITIS
     Dosage: UNK
     Route: 065
  2. BENEPALI [Suspect]
     Active Substance: ETANERCEPT
     Indication: RHEUMATOID ARTHRITIS
     Dosage: 50 MG, QW
     Route: 058
     Dates: start: 20200403

REACTIONS (14)
  - Hydronephrosis [Unknown]
  - Joint swelling [Unknown]
  - Prostatic specific antigen increased [Unknown]
  - Sleep disorder [Unknown]
  - Pyrexia [Unknown]
  - Hyperhidrosis [Unknown]
  - Disturbance in attention [Unknown]
  - Malaise [Unknown]
  - Urinary tract infection [Unknown]
  - Rheumatoid arthritis [Unknown]
  - Asthenia [Unknown]
  - Dizziness [Unknown]
  - Nocturia [Unknown]
  - Weight increased [Unknown]
